FAERS Safety Report 5520970-8 (Version None)
Quarter: 2007Q4

REPORT INFORMATION
  Report Type: 
  Country: None (occurrence: None)
  Receive Date: 20071119
  Receipt Date: 20071106
  Transmission Date: 20080405
  Serious: Yes (Hospitalization)
  Sender: FDA-Public Use
  Company Number: ES-ROCHE-530219

PATIENT
  Age: 68 Year
  Sex: Female

DRUGS (7)
  1. CELLCEPT [Suspect]
     Route: 048
     Dates: start: 20050101
  2. PROGRAF [Suspect]
     Indication: LIVER TRANSPLANT
     Route: 048
     Dates: start: 20050901, end: 20060401
  3. OMEPRAZOLE [Concomitant]
     Route: 048
  4. SEPTRIN FORTE [Concomitant]
     Route: 048
  5. URBASON [Concomitant]
     Route: 048
  6. MASTICAL [Concomitant]
     Dosage: FORMULATION REPORTED AS CHEWABLE TABLET.
     Route: 048
  7. DUPHALAC [Concomitant]
     Route: 048

REACTIONS (7)
  - AGRAPHIA [None]
  - AMNESIA [None]
  - APRAXIA [None]
  - DISORIENTATION [None]
  - DYSLEXIA [None]
  - HEMISENSORY NEGLECT [None]
  - REVERSIBLE POSTERIOR LEUKOENCEPHALOPATHY SYNDROME [None]
